FAERS Safety Report 9054022 (Version 1)
Quarter: 2013Q1

REPORT INFORMATION
  Report Type: Spontaneous
  Country: BR (occurrence: BR)
  Receive Date: 20130208
  Receipt Date: 20130208
  Transmission Date: 20140127
  Serious: Yes (Hospitalization)
  Sender: FDA-Public Use
  Company Number: BR-PFIZER INC-2013052241

PATIENT
  Age: 72 Year
  Sex: Female

DRUGS (2)
  1. CITALOR [Suspect]
     Indication: BLOOD CHOLESTEROL INCREASED
     Dosage: 1 TABLET (10 MG), 1X/DAY
     Route: 048
     Dates: start: 20030708
  2. LIPITOR [Suspect]
     Indication: BLOOD CHOLESTEROL INCREASED
     Dosage: 1 TABLET (40 MG), 1X/DAY
     Route: 048
     Dates: start: 20030716

REACTIONS (1)
  - Skin cancer [Unknown]
